FAERS Safety Report 25973975 (Version 1)
Quarter: 2025Q4

REPORT INFORMATION
  Report Type: Spontaneous
  Country: JP (occurrence: JP)
  Receive Date: 20251029
  Receipt Date: 20251029
  Transmission Date: 20260118
  Serious: Yes (Other)
  Sender: MERCK SHARP & DOHME LLC
  Company Number: JP-009507513-2342623

PATIENT
  Age: 54 Year

DRUGS (3)
  1. KEYTRUDA [Suspect]
     Active Substance: PEMBROLIZUMAB
     Indication: Triple negative breast cancer
     Dosage: 1 CYCLE
     Route: 065
  2. CYCLOPHOSPHAMIDE [Suspect]
     Active Substance: CYCLOPHOSPHAMIDE
     Indication: Triple negative breast cancer
     Dosage: 1 CYCLE
  3. EPINEPHRINE [Suspect]
     Active Substance: EPINEPHRINE
     Indication: Triple negative breast cancer
     Dosage: 1 CYCLE

REACTIONS (2)
  - Febrile neutropenia [Unknown]
  - Pneumonitis [Unknown]
